FAERS Safety Report 23094197 (Version 1)
Quarter: 2023Q4

REPORT INFORMATION
  Report Type: Spontaneous
  Country: US (occurrence: US)
  Receive Date: 20231023
  Receipt Date: 20231023
  Transmission Date: 20240109
  Serious: No
  Sender: FDA-Public Use
  Company Number: US-LEO Pharma-362693

PATIENT
  Age: 72 Year
  Sex: Female

DRUGS (1)
  1. ADBRY [Suspect]
     Active Substance: TRALOKINUMAB-LDRM
     Indication: Dermatitis atopic

REACTIONS (6)
  - Pain [Unknown]
  - Pruritus [Unknown]
  - Rash [Recovered/Resolved]
  - Myalgia [Unknown]
  - Eye pruritus [Unknown]
  - Ocular hyperaemia [Unknown]
